FAERS Safety Report 7829912-3 (Version None)
Quarter: 2011Q4

REPORT INFORMATION
  Report Type: 
  Country: None (occurrence: None)
  Receive Date: 20111021
  Receipt Date: 20110930
  Transmission Date: 20120403
  Serious: Yes (Other)
  Sender: FDA-Public Use
  Company Number: BR-BAYER-2011-093987

PATIENT
  Age: 24 Year
  Sex: Female

DRUGS (1)
  1. ESTRADIOL VALERATE/DIENOGEST [Suspect]
     Indication: CONTRACEPTION
     Dosage: UNK UNK, QD
     Route: 048
     Dates: start: 20110301, end: 20110923

REACTIONS (7)
  - PYREXIA [None]
  - METRORRHAGIA [None]
  - PREGNANCY ON ORAL CONTRACEPTIVE [None]
  - ANTEPARTUM HAEMORRHAGE [None]
  - URINARY TRACT INFECTION [None]
  - NAUSEA [None]
  - NASOPHARYNGITIS [None]
